FAERS Safety Report 8541685-8 (Version None)
Quarter: 2012Q3

REPORT INFORMATION
  Report Type: 
  Country: None (occurrence: None)
  Receive Date: 20120726
  Receipt Date: 20120711
  Transmission Date: 20120928
  Serious: Yes (Other)
  Sender: FDA-Public Use
  Company Number: CHPA2012US015383

PATIENT
  Age: 69 Year
  Sex: Female

DRUGS (10)
  1. ACIDOPHILUS ^ZYMA^ [Concomitant]
     Dosage: UNK, UNK
  2. METOPROLOL SUCCINATE [Concomitant]
     Dosage: 50 MG, UNK
  3. VITAMINS NOS [Concomitant]
     Dosage: UNK, UNK
  4. LOVAZA [Concomitant]
     Dosage: UNK, UNK
  5. PERIFUSIN [Concomitant]
     Dosage: UNK, UNK
  6. BENEFIBER W/ WHEAT DEXTRIN [Suspect]
     Indication: CONSTIPATION
     Dosage: 2 TSP, TID
     Route: 048
  7. AMLODIPINE BESYLATE [Concomitant]
     Dosage: UNK, UNK
  8. DRUG THERAPY NOS [Concomitant]
     Dosage: UNK, UNK
  9. CHROMIUM CHLORIDE [Concomitant]
     Dosage: UNK, UNK
  10. MAGNESIUM SUPPLEMENTS [Concomitant]
     Dosage: UNK, UNK

REACTIONS (2)
  - EYE INFECTION [None]
  - OFF LABEL USE [None]
